FAERS Safety Report 9703839 (Version 2)
Quarter: 2014Q1

REPORT INFORMATION
  Report Type: Spontaneous
  Country: TR (occurrence: TR)
  Receive Date: 20131122
  Receipt Date: 20140205
  Transmission Date: 20141002
  Serious: Yes (Hospitalization, Other)
  Sender: FDA-Public Use
  Company Number: TR-VERTEX PHARMACEUTICALS INC-2013-011277

PATIENT
  Age: 61 Year
  Sex: Male

DRUGS (4)
  1. INCIVO [Suspect]
     Indication: HEPATITIS C
     Dates: start: 2013
  2. RIBAVIRIN [Suspect]
     Indication: HEPATITIS C
     Dosage: 600 MG, BID
     Dates: start: 2013
  3. RIBAVIRIN [Suspect]
     Dosage: 400 MG, BID
  4. PEGINTERFERON ALFA 2A [Suspect]
     Indication: HEPATITIS C
     Dates: start: 2013

REACTIONS (4)
  - Ascites [Unknown]
  - Liver disorder [Unknown]
  - Hepatocellular carcinoma [Unknown]
  - Anaemia [Unknown]
